FAERS Safety Report 21394695 (Version 1)
Quarter: 2022Q3

REPORT INFORMATION
  Report Type: Spontaneous
  Country: US (occurrence: US)
  Receive Date: 20220930
  Receipt Date: 20220930
  Transmission Date: 20221026
  Serious: No
  Sender: FDA-Public Use
  Company Number: US-BIOGEN-2021BI01035258

PATIENT
  Sex: Female

DRUGS (12)
  1. SPINRAZA [Suspect]
     Active Substance: NUSINERSEN
     Indication: Spinal muscular atrophy
     Dosage: PHYSICIAN TO ADMINISTER 12MG/5ML INTRATHECALLY ONCE EVERY 4 MONTHS.
     Route: 050
  2. SPINRAZA [Suspect]
     Active Substance: NUSINERSEN
     Dosage: LOADING DOSE EVERY 14 DAYS
     Route: 050
  3. SPINRAZA [Suspect]
     Active Substance: NUSINERSEN
     Dosage: LOADING DOSE EVERY 14 DAYS
     Route: 050
  4. SPINRAZA [Suspect]
     Active Substance: NUSINERSEN
     Dosage: LOADING DOSE EVERY 14 DAYS
     Route: 050
  5. SPINRAZA [Suspect]
     Active Substance: NUSINERSEN
     Dosage: LOADING DOSE ONCE AFTER 30 DAYS
     Route: 050
  6. SPINRAZA [Suspect]
     Active Substance: NUSINERSEN
     Dosage: MAINTENANCE DOSE
     Route: 050
  7. ALBUTEROL [Concomitant]
     Active Substance: ALBUTEROL
     Indication: Product used for unknown indication
     Dosage: 2 MG/ 5 ML - TAKE 10 ML (4 MG BY MOUTH THREE TIMES DAILY, START WITH 2 MG 2 TIMES A DAY DAILY, TH...
     Route: 050
  8. ALBUTEROL [Concomitant]
     Active Substance: ALBUTEROL
     Dosage: 2.5 MG / 3 ML - NEBULIZER SOLUTION 3 ML BY NEBULIZATION ROUTE 2 TIMES A DAY AS NEEDED. DO NOT USE...
     Route: 050
  9. ALBUTEROL [Concomitant]
     Active Substance: ALBUTEROL
     Dosage: 90 MCG / ACLUATION HFA INHALER INHALE 2 PUFFS BY MOUTH EVERY 6 HOURS AS NEEDED 8.5 G
     Route: 050
  10. calcium phosphate dibas/vit d3 [Concomitant]
     Indication: Product used for unknown indication
     Dosage: TAKE BY MOUTH EVERY DAY
     Route: 050
  11. FLUTICASONE PROPIONATE [Concomitant]
     Active Substance: FLUTICASONE PROPIONATE
     Indication: Product used for unknown indication
     Dosage: 110 MCG/ACLUATION INHALER 1 PUFF BY INHALATION ROUTE DAILY
     Route: 050
  12. LIDOCAINE [Concomitant]
     Active Substance: LIDOCAINE
     Indication: Product used for unknown indication
     Dosage: 4 PERCENT NASAL SPRAY
     Route: 050

REACTIONS (5)
  - Asthenia [Unknown]
  - Dysphagia [Unknown]
  - Drug ineffective [Unknown]
  - Aspiration [Unknown]
  - Fatigue [Unknown]
